FAERS Safety Report 4981712-8 (Version None)
Quarter: 2006Q2

REPORT INFORMATION
  Report Type: 
  Country: None (occurrence: None)
  Receive Date: 20060420
  Receipt Date: 20060420
  Transmission Date: 20061013
  Serious: No
  Sender: FDA-Public Use
  Company Number: None

PATIENT
  Age: 50 Year
  Sex: Female

DRUGS (1)
  1. INFED [Suspect]
     Indication: ANAEMIA
     Dosage: 100 MG IV WEEKLY
     Route: 042
     Dates: start: 20051230, end: 20060106

REACTIONS (3)
  - BACK PAIN [None]
  - FEELING ABNORMAL [None]
  - INFUSION RELATED REACTION [None]
